FAERS Safety Report 7242753-3 (Version None)
Quarter: 2011Q1

REPORT INFORMATION
  Report Type: 
  Country: None (occurrence: None)
  Receive Date: 20110125
  Receipt Date: 20110114
  Transmission Date: 20110831
  Serious: Yes (Hospitalization)
  Sender: FDA-Public Use
  Company Number: NL-NOVOPROD-320283

PATIENT
  Age: 60 Year
  Sex: Male
  Weight: 125 kg

DRUGS (2)
  1. VICTOZA [Suspect]
     Indication: TYPE 2 DIABETES MELLITUS
     Dosage: 1.2 MG, QD
     Route: 058
  2. METFORMIN HCL [Concomitant]

REACTIONS (2)
  - WEIGHT DECREASED [None]
  - HELICOBACTER INFECTION [None]
